FAERS Safety Report 7929962-2 (Version None)
Quarter: 2011Q4

REPORT INFORMATION
  Report Type: 
  Country: None (occurrence: None)
  Receive Date: 20111117
  Receipt Date: 20111114
  Transmission Date: 20120403
  Serious: Yes (Disabling, Other)
  Sender: FDA-Public Use
  Company Number: ZYD-11-AE-228

PATIENT
  Age: 59 Year
  Sex: Male

DRUGS (4)
  1. DILANTIN [Concomitant]
  2. LAMOTRIGINE [Suspect]
     Indication: CONVULSION
     Dosage: 275 MG - BID
     Dates: start: 20111018, end: 20111020
  3. LEVETIRACETAM [Concomitant]
  4. LAMOTRIGINE [Suspect]
     Indication: CONVULSION
     Dosage: 275MG - BID
     Dates: start: 20110901

REACTIONS (15)
  - AURA [None]
  - PERSONALITY CHANGE [None]
  - ANGER [None]
  - SCREAMING [None]
  - PRODUCT SUBSTITUTION ISSUE [None]
  - PARAESTHESIA [None]
  - GLOSSODYNIA [None]
  - CONVULSION [None]
  - FEELING ABNORMAL [None]
  - COORDINATION ABNORMAL [None]
  - VISUAL IMPAIRMENT [None]
  - AGGRESSION [None]
  - IRRITABILITY [None]
  - SKIN BURNING SENSATION [None]
  - BALANCE DISORDER [None]
